FAERS Safety Report 19495483 (Version 1)
Quarter: 2021Q3

REPORT INFORMATION
  Report Type: Spontaneous
  Country: US (occurrence: US)
  Receive Date: 20210706
  Receipt Date: 20210706
  Transmission Date: 20211014
  Serious: Yes (Other)
  Sender: FDA-Public Use
  Company Number: US-AUROBINDO-AUR-APL-2021-027964

PATIENT
  Age: 51 Year
  Sex: Male

DRUGS (24)
  1. HYDROMORPHONE [Suspect]
     Active Substance: HYDROMORPHONE
     Dosage: UNK (0.38 MG PER DAY)
     Route: 065
  2. MORPHINE [Suspect]
     Active Substance: MORPHINE
     Dosage: 1.726 MILLIGRAM (20% INCREASE)
     Dates: start: 20180417
  3. PREDNISONE. [Concomitant]
     Active Substance: PREDNISONE
     Indication: PRODUCT USED FOR UNKNOWN INDICATION
     Dosage: UNK (HIGH?DOSE)
     Route: 065
  4. MORPHINE [Suspect]
     Active Substance: MORPHINE
     Dosage: 1.89 UNK (PTM 0.095 MG EVERY 8 HRS AS NEEDED)
     Route: 065
     Dates: start: 20180613
  5. MORPHINE [Suspect]
     Active Substance: MORPHINE
     Dosage: 5.5 MILLILITER
     Route: 065
  6. MORPHINE [Suspect]
     Active Substance: MORPHINE
     Dosage: 1.2 MILLIGRAM
     Route: 065
     Dates: start: 20171229
  7. MORPHINE [Suspect]
     Active Substance: MORPHINE
     Dosage: 2.42 MILLIGRAM (PTM 0.1 MG EVERY 8 HRS AS NEEDED) (10% INCREASE)
     Route: 065
     Dates: start: 20181009
  8. DULOXETINE. [Suspect]
     Active Substance: DULOXETINE
     Indication: PAIN
     Dosage: 60 MILLIGRAM, DAILY
     Route: 065
  9. HYDROMORPHONE [Suspect]
     Active Substance: HYDROMORPHONE
     Dosage: 0.38 MILLIGRAM
     Dates: start: 20181218
  10. HYDROMORPHONE [Suspect]
     Active Substance: HYDROMORPHONE
     Dosage: 0.418 MILLIGRAM (PTM 0.03 MG EVERY 8 HRS AS NEEDED) (10 % INCREASE)
     Route: 065
     Dates: start: 20181226
  11. HYDROMORPHONE [Suspect]
     Active Substance: HYDROMORPHONE
     Dosage: UNK (0.5053 MG, PTM 0.03 MG EVERY 8 HRS AS NEEDED) (10% INCREASE)
     Route: 065
     Dates: start: 20190211
  12. OXYCODONE [Suspect]
     Active Substance: OXYCODONE
     Indication: PAIN
     Dosage: 30 MILLIGRAM (EVERY 3 HOURS)
     Route: 065
  13. MORPHINE [Suspect]
     Active Substance: MORPHINE
     Indication: BACK PAIN
     Dosage: 50 MCG, EVERY HOUR
     Route: 065
  14. MORPHINE [Suspect]
     Active Substance: MORPHINE
     Dosage: 1.2 MILLIGRAM, DAILY
  15. MORPHINE [Suspect]
     Active Substance: MORPHINE
     Dosage: 2.2 MILLIGRAM (PTM 0.1 MG EVERY 8 HRS AS NEEDED) (10 % INCREASE)
     Route: 065
     Dates: start: 20180925
  16. HYDROMORPHONE [Suspect]
     Active Substance: HYDROMORPHONE
     Dosage: UNK (0.4593 MG, PTM 0.03 MG EVERY 8 HRS AS NEEDED) (10 % INCREASE)
     Route: 065
     Dates: start: 20190108
  17. MORPHINE [Suspect]
     Active Substance: MORPHINE
     Indication: PRODUCT USED FOR UNKNOWN INDICATION
     Dosage: 40 MCG, EVERY HOUR
     Route: 065
  18. GABAPENTIN. [Suspect]
     Active Substance: GABAPENTIN
     Indication: PAIN
     Dosage: 800 MILLIGRAM, 3 TIMES A DAY
     Route: 065
  19. HYDROMORPHONE [Suspect]
     Active Substance: HYDROMORPHONE
     Indication: PRODUCT USED FOR UNKNOWN INDICATION
     Dosage: 40 MILLILITER  (5 MG/ML)
     Route: 065
  20. METHADONE [Suspect]
     Active Substance: METHADONE HYDROCHLORIDE
     Indication: PAIN
     Dosage: 40 MILLIGRAM, DAILY
     Route: 065
  21. MORPHINE [Suspect]
     Active Substance: MORPHINE
     Dosage: 1.439 MILLIGRAM (20% INCREASE)
     Route: 065
     Dates: start: 20180206
  22. MORPHINE [Suspect]
     Active Substance: MORPHINE
     Dosage: 2 MILLIGRAM (PTM 0.1 MG EVERY 8 HRS AS NEEDED) (6% INCREASE)
     Route: 065
     Dates: start: 20180726
  23. HYDROMORPHONE [Suspect]
     Active Substance: HYDROMORPHONE
     Dosage: UNK (0.5563 MG, PTM 0.03 MG EVERY 8 HRS AS NEEDED) (10 % INCREASE)
     Route: 065
     Dates: start: 20190326
  24. MORPHINE [Suspect]
     Active Substance: MORPHINE
     Dosage: UNK (INCREASED BY 20% TO 2.4 MG PER DAY)
     Route: 065

REACTIONS (1)
  - Drug ineffective [Unknown]
